FAERS Safety Report 14290009 (Version 6)
Quarter: 2021Q4

REPORT INFORMATION
  Report Type: Spontaneous
  Country: ES (occurrence: ES)
  Receive Date: 20171214
  Receipt Date: 20211214
  Transmission Date: 20220303
  Serious: Yes (Death, Hospitalization, Other)
  Sender: FDA-Public Use
  Company Number: ES-002147023-PHHO2017ES015918

PATIENT
  Age: 57 Year
  Sex: Male
  Weight: 64.8 kg

DRUGS (11)
  1. DICLOFENAC [Suspect]
     Active Substance: DICLOFENAC
     Indication: Arthritis
     Route: 065
     Dates: start: 201711
  2. SACUBITRIL\VALSARTAN [Suspect]
     Active Substance: SACUBITRIL\VALSARTAN
     Indication: Cardiac failure
     Dosage: CODE NOT BROKEN
     Route: 048
     Dates: start: 20161011
  3. DIOVAN [Suspect]
     Active Substance: VALSARTAN
     Indication: Cardiac failure
     Dosage: CODE NOT BROKEN
     Route: 048
     Dates: start: 20161011
  4. METAMIZOL [Concomitant]
     Active Substance: METAMIZOLE SODIUM
     Indication: Arthritis
  5. PITAVASTATIN [Concomitant]
     Active Substance: PITAVASTATIN
     Indication: Dyslipidaemia
     Route: 048
     Dates: start: 2005, end: 20171116
  6. ACENOCOUMAROL [Concomitant]
     Active Substance: ACENOCOUMAROL
     Indication: Prophylaxis
     Dosage: ON DEMAND
     Route: 048
     Dates: start: 201406, end: 20171116
  7. ETORICOXIB [Concomitant]
     Active Substance: ETORICOXIB
     Indication: Spinal compression fracture
     Route: 048
     Dates: start: 2014, end: 20171116
  8. OMEPRAZOLE [Concomitant]
     Active Substance: OMEPRAZOLE
     Indication: Gastroduodenal ulcer
     Route: 048
     Dates: start: 20160912, end: 20171116
  9. FUROSEMIDE [Concomitant]
     Active Substance: FUROSEMIDE
     Indication: Cardiac failure
     Route: 048
     Dates: start: 201312, end: 20171116
  10. FENTANYL [Concomitant]
     Active Substance: FENTANYL
     Indication: Spinal compression fracture
     Route: 062
     Dates: start: 2004, end: 20171116
  11. BISOPROLOL [Concomitant]
     Active Substance: BISOPROLOL
     Indication: Cardiac failure
     Route: 048
     Dates: start: 201312

REACTIONS (4)
  - Cardiac arrest [Fatal]
  - Osteomyelitis [Not Recovered/Not Resolved]
  - Upper gastrointestinal haemorrhage [Not Recovered/Not Resolved]
  - Gouty arthritis [Not Recovered/Not Resolved]

NARRATIVE: CASE EVENT DATE: 20171117
